FAERS Safety Report 9511289 (Version 1)
Quarter: 2013Q3

REPORT INFORMATION
  Report Type: Spontaneous
  Country: US (occurrence: None)
  Receive Date: 20130906
  Receipt Date: 20130906
  Transmission Date: 20140515
  Serious: Yes (Hospitalization)
  Sender: FDA-Public Use
  Company Number: 2013P1018988

PATIENT
  Age: 37 Year
  Sex: Female

DRUGS (2)
  1. PROPYLTHIOURACIL [Suspect]
     Indication: HYPERTHYROIDISM
     Dosage: 50 MG; Q8H; 4 DAYS
  2. METHIMAZOLE [Suspect]
     Indication: HYPERTHYROIDISM
     Dosage: 10 MG; BID; 4 TO 5 WEEKS

REACTIONS (11)
  - Ecthyma [None]
  - Maternal exposure during pregnancy [None]
  - Pruritus generalised [None]
  - Scratch [None]
  - Excoriation [None]
  - Systemic inflammatory response syndrome [None]
  - Sepsis [None]
  - Staphylococcus test positive [None]
  - Abortion spontaneous [None]
  - Agranulocytosis [None]
  - Superinfection bacterial [None]
